FAERS Safety Report 12155237 (Version 1)
Quarter: 2016Q1

REPORT INFORMATION
  Report Type: Spontaneous
  Country: FR (occurrence: FR)
  Receive Date: 20160307
  Receipt Date: 20160307
  Transmission Date: 20160526
  Serious: Yes (Hospitalization)
  Sender: FDA-Public Use
  Company Number: FR-SUNOVION-2016SUN000521

PATIENT

DRUGS (11)
  1. LAMICTAL [Suspect]
     Active Substance: LAMOTRIGINE
     Indication: EPILEPSY
     Dosage: 200 MG, DAILY
     Route: 048
  2. COUMADINE [Concomitant]
     Active Substance: WARFARIN SODIUM
     Dosage: 2 MG, DAILY
  3. ZEBINIX [Suspect]
     Active Substance: ESLICARBAZEPINE ACETATE
     Dosage: 1600 MG, DAILY
     Route: 048
  4. EPITOMAX [Suspect]
     Active Substance: TOPIRAMATE
     Indication: EPILEPSY
     Dosage: 600 MG, DAILY
     Route: 048
  5. FYCOMPA [Suspect]
     Active Substance: PERAMPANEL
     Dosage: 8 MG, DAILY
     Route: 048
     Dates: end: 20150629
  6. ZEBINIX [Suspect]
     Active Substance: ESLICARBAZEPINE ACETATE
     Indication: EPILEPSY
     Dosage: UNK, UNKNOWN
     Route: 048
  7. FYCOMPA [Suspect]
     Active Substance: PERAMPANEL
     Dosage: 12 MG, DAILY
     Route: 048
     Dates: start: 20150822
  8. COUMADINE [Concomitant]
     Active Substance: WARFARIN SODIUM
     Dosage: 5 MG, DAILY
     Route: 048
  9. FYCOMPA [Suspect]
     Active Substance: PERAMPANEL
     Dosage: 6 MG, DAILY
     Route: 048
  10. FYCOMPA [Suspect]
     Active Substance: PERAMPANEL
     Indication: EPILEPSY
     Dosage: UNK, UNKNOWN
     Route: 048
  11. FYCOMPA [Suspect]
     Active Substance: PERAMPANEL
     Dosage: 10
     Route: 065

REACTIONS (5)
  - Anxiety [Recovering/Resolving]
  - Delusion [Recovering/Resolving]
  - Speech disorder [Recovering/Resolving]
  - Abnormal behaviour [Recovering/Resolving]
  - Overdose [Unknown]

NARRATIVE: CASE EVENT DATE: 20150822
